FAERS Safety Report 7949563-X (Version None)
Quarter: 2011Q4

REPORT INFORMATION
  Report Type: 
  Country: None (occurrence: None)
  Receive Date: 20111130
  Receipt Date: 20111121
  Transmission Date: 20120403
  Serious: Yes (Other)
  Sender: FDA-Public Use
  Company Number: US-BAYER-2011-112533

PATIENT
  Age: 32 Year
  Sex: Female

DRUGS (2)
  1. YAZ [Suspect]
     Dosage: UNK
     Dates: start: 20090309, end: 20091010
  2. YASMIN [Suspect]
     Dosage: UNK
     Dates: start: 20030801, end: 20070801

REACTIONS (2)
  - CHOLECYSTECTOMY [None]
  - INJURY [None]
